FAERS Safety Report 4618507-0 (Version None)
Quarter: 2005Q1

REPORT INFORMATION
  Report Type: 
  Country: None (occurrence: None)
  Receive Date: 20050323
  Receipt Date: 20050317
  Transmission Date: 20050727
  Serious: Yes (Hospitalization)
  Sender: FDA-Public Use
  Company Number: 2005CG00488

PATIENT
  Age: 7 Year
  Sex: Female
  Weight: 23 kg

DRUGS (5)
  1. NEXIUM [Suspect]
     Dosage: 1 DF QD PO
     Route: 048
     Dates: start: 20050106, end: 20050210
  2. NO MATCH [Suspect]
     Dosage: 150 MG BID PO
     Route: 048
     Dates: start: 20050106, end: 20050214
  3. QUITAXON [Concomitant]
  4. FORLAX [Concomitant]
  5. PROTOVIT [Concomitant]

REACTIONS (2)
  - LEUKOPENIA [None]
  - NEUTROPENIA [None]
